FAERS Safety Report 9696257 (Version 5)
Quarter: 2014Q1

REPORT INFORMATION
  Report Type: Report from Study
  Country: US (occurrence: US)
  Receive Date: 20131119
  Receipt Date: 20140128
  Transmission Date: 20141002
  Serious: Yes (Other)
  Sender: FDA-Public Use
  Company Number: US-FRI-1000049753

PATIENT
  Age: 32 Year
  Sex: Female
  Weight: 103 kg

DRUGS (5)
  1. NUVARING [Concomitant]
     Indication: CONTRACEPTION
     Route: 067
     Dates: start: 201303
  2. MELATONIN [Concomitant]
     Indication: INSOMNIA
     Route: 048
     Dates: start: 201108
  3. ONE A DAY VITAMIN [Concomitant]
     Indication: NUTRITIONAL SUPPLEMENTATION
     Dosage: 1 TABLET
     Route: 048
     Dates: start: 201307
  4. NYQUIL [Concomitant]
     Indication: INSOMNIA
     Dosage: 2 CAPSULES
     Route: 048
     Dates: start: 20130930, end: 20130930
  5. VILAZODONE [Suspect]
     Indication: GENERALISED ANXIETY DISORDER
     Dosage: 20-40 MG
     Route: 048
     Dates: start: 20130928, end: 20131002

REACTIONS (2)
  - Foetal death [Recovered/Resolved]
  - Pregnancy [Recovered/Resolved]
